FAERS Safety Report 7141582-9 (Version None)
Quarter: 2010Q4

REPORT INFORMATION
  Report Type: 
  Country: None (occurrence: None)
  Receive Date: 20101207
  Receipt Date: 20101124
  Transmission Date: 20110411
  Serious: Yes (Hospitalization, Other)
  Sender: FDA-Public Use
  Company Number: US-ELI_LILLY_AND_COMPANY-US201011007183

PATIENT
  Sex: Female

DRUGS (15)
  1. CYMBALTA [Suspect]
     Indication: DEPRESSION
     Dosage: 60 MG, UNK
  2. CYMBALTA [Suspect]
     Dosage: 30 MG, UNK
     Dates: start: 20100813
  3. CYMBALTA [Suspect]
     Dosage: 30 MG, UNK
     Dates: start: 20100908
  4. CYMBALTA [Suspect]
     Dosage: 1 D/F, UNK
     Dates: start: 20100912, end: 20100923
  5. CYMBALTA [Suspect]
     Dosage: 30 MG, UNK
     Dates: start: 20100926, end: 20100928
  6. CYMBALTA [Suspect]
     Dosage: 20 MG, UNK
     Dates: start: 20101112
  7. PLAVIX [Concomitant]
  8. SYNTHROID [Concomitant]
  9. ZEBETA [Concomitant]
     Dosage: 5 MG, UNK
  10. TEKTURNA [Concomitant]
     Indication: BLOOD PRESSURE
  11. BENICAR [Concomitant]
     Dosage: 40 MG, UNK
  12. MULTAQ [Concomitant]
     Dosage: 400 MG, 2/D
  13. ASPIRIN /USA/ [Concomitant]
  14. BUSPIRONE HCL [Concomitant]
     Dosage: 15 MG, 2/D
  15. MIRTAZAPINE [Concomitant]
     Dosage: 30 MG, DAILY (1/D)

REACTIONS (11)
  - ATRIAL FIBRILLATION [None]
  - BURNING SENSATION [None]
  - CEREBROVASCULAR ACCIDENT [None]
  - DIVERTICULITIS [None]
  - FEELING ABNORMAL [None]
  - FEELING HOT [None]
  - GASTRIC ULCER HAEMORRHAGE [None]
  - INCOHERENT [None]
  - INTENTIONAL DRUG MISUSE [None]
  - NEUROPATHY PERIPHERAL [None]
  - TRANSIENT ISCHAEMIC ATTACK [None]
